FAERS Safety Report 7597283-6 (Version None)
Quarter: 2011Q3

REPORT INFORMATION
  Report Type: 
  Country: None (occurrence: None)
  Receive Date: 20110708
  Receipt Date: 20110225
  Transmission Date: 20111222
  Serious: No
  Sender: FDA-Public Use
  Company Number: US-GLAXOSMITHKLINE-A0915393A

PATIENT
  Age: 77 Year
  Sex: Female

DRUGS (3)
  1. FLOVENT [Suspect]
     Indication: ASTHMA
     Dosage: 2PUFF TWICE PER DAY
     Route: 055
     Dates: start: 20110126
  2. FLUTICASONE PROPIONATE [Suspect]
     Indication: SINUSITIS
     Dosage: 1PUFF TWICE PER DAY
     Route: 045
     Dates: start: 20110126
  3. ALLEGRA [Concomitant]
     Route: 065

REACTIONS (1)
  - RASH [None]
